FAERS Safety Report 14273781 (Version 2)
Quarter: 2018Q1

REPORT INFORMATION
  Report Type: Report from Study
  Country: None (occurrence: BR)
  Receive Date: 20171211
  Receipt Date: 20180118
  Transmission Date: 20180508
  Serious: Yes (Hospitalization, Other)
  Sender: FDA-Public Use
  Company Number: BR-ABBVIE-17K-020-2188700-00

PATIENT
  Age: 31 Year
  Sex: Female
  Weight: 69 kg

DRUGS (12)
  1. PURAN [Concomitant]
     Active Substance: LEVOTHYROXINE SODIUM
     Indication: THYROID DISORDER
     Route: 048
     Dates: start: 20170628
  2. MESACOL [Concomitant]
     Active Substance: MESALAMINE
     Indication: CROHN^S DISEASE
     Route: 048
  3. HUMIRA [Suspect]
     Active Substance: ADALIMUMAB
     Dosage: MAINTENANCE DOSE
     Route: 058
     Dates: start: 201707, end: 20171030
  4. HUMIRA [Suspect]
     Active Substance: ADALIMUMAB
     Dosage: LOADING DOSE WEEK 2
     Route: 058
     Dates: start: 201707, end: 201707
  5. AMYTRIL [Concomitant]
     Active Substance: AMITRIPTYLINE HYDROCHLORIDE
     Indication: SLEEP DISORDER THERAPY
     Route: 048
     Dates: start: 20170704
  6. ARTEMIDIS 35 [Concomitant]
     Indication: CONTRACEPTION
     Dosage: FORM STRENGTH: CYPROTERONE  ACETATE 2.0 MG / ETHINYLESTRADIOL 0.035 MG
     Route: 048
     Dates: start: 2012
  7. AZATHIOPRINE. [Concomitant]
     Active Substance: AZATHIOPRINE
     Indication: CROHN^S DISEASE
     Route: 048
     Dates: start: 20170310
  8. ATENOLOL. [Concomitant]
     Active Substance: ATENOLOL
     Indication: BLOOD PRESSURE ABNORMAL
     Route: 048
     Dates: start: 201702
  9. HUMIRA [Suspect]
     Active Substance: ADALIMUMAB
     Indication: CROHN^S DISEASE
     Dosage: LOADING DOSE WEEK 0
     Route: 058
     Dates: start: 20170710, end: 20170710
  10. SULFASALAZINE. [Concomitant]
     Active Substance: SULFASALAZINE
     Indication: CROHN^S DISEASE
     Route: 048
     Dates: start: 20170407
  11. ARTEMIDIS 35 [Concomitant]
     Indication: LEIOMYOMA
  12. BROMAZEPAM [Concomitant]
     Active Substance: BROMAZEPAM
     Indication: SEDATIVE THERAPY
     Route: 048
     Dates: start: 20170310

REACTIONS (5)
  - Physical assault [Unknown]
  - Post procedural complication [Recovering/Resolving]
  - Ileal stenosis [Recovering/Resolving]
  - Intestinal obstruction [Recovering/Resolving]
  - Pain [Unknown]

NARRATIVE: CASE EVENT DATE: 201711
